FAERS Safety Report 14256581 (Version 4)
Quarter: 2018Q2

REPORT INFORMATION
  Report Type: Spontaneous
  Country: IT (occurrence: IT)
  Receive Date: 20171206
  Receipt Date: 20180629
  Transmission Date: 20180711
  Serious: Yes (Other)
  Sender: FDA-Public Use
  Company Number: IT-ALLERGAN-1769188US

PATIENT
  Age: 25 Year
  Sex: Female

DRUGS (2)
  1. CITALOPRAM HYDROBROMIDE - BP [Suspect]
     Active Substance: CITALOPRAM HYDROBROMIDE
     Indication: MAJOR DEPRESSION
     Dosage: 25 MG, QD
     Route: 065
  2. CITALOPRAM HYDROBROMIDE - BP [Suspect]
     Active Substance: CITALOPRAM HYDROBROMIDE
     Indication: OBSESSIVE-COMPULSIVE DISORDER

REACTIONS (2)
  - Hypomania [Recovered/Resolved]
  - Off label use [Unknown]
